FAERS Safety Report 13782393 (Version 1)
Quarter: 2017Q3

REPORT INFORMATION
  Report Type: Spontaneous
  Country: US (occurrence: US)
  Receive Date: 20170724
  Receipt Date: 20170724
  Transmission Date: 20171127
  Serious: No
  Sender: FDA-Public Use
  Company Number: US-PRINSTON PHARMACEUTICAL INC.-2017PRN00041

PATIENT
  Age: 75 Year
  Sex: Male
  Weight: 82.54 kg

DRUGS (2)
  1. DONEPEZIL HYDROCHLORIDE. [Suspect]
     Active Substance: DONEPEZIL HYDROCHLORIDE
     Indication: MEMORY IMPAIRMENT
     Dosage: 5 MG, 1X/DAY
     Route: 048
     Dates: start: 20170111, end: 201702
  2. PEPCID AC [Concomitant]
     Active Substance: FAMOTIDINE
     Dosage: UNK, 2X/DAY

REACTIONS (8)
  - Balance disorder [Recovering/Resolving]
  - Head discomfort [Recovering/Resolving]
  - Dizziness [Recovering/Resolving]
  - Nausea [Recovered/Resolved]
  - Disturbance in attention [Recovering/Resolving]
  - Feeling abnormal [Not Recovered/Not Resolved]
  - Asthenia [Recovering/Resolving]
  - Loss of personal independence in daily activities [Recovering/Resolving]

NARRATIVE: CASE EVENT DATE: 20170112
